FAERS Safety Report 25645646 (Version 1)
Quarter: 2025Q3

REPORT INFORMATION
  Report Type: Spontaneous
  Country: US (occurrence: None)
  Receive Date: 20250804
  Receipt Date: 20250804
  Transmission Date: 20251020
  Serious: Yes (Other)
  Sender: FDA-CTU
  Company Number: None

PATIENT
  Age: 62 Year
  Sex: Female
  Weight: 107 kg

DRUGS (1)
  1. METHIMAZOLE [Suspect]
     Active Substance: METHIMAZOLE
     Indication: Graves^ disease
     Dosage: FREQUENCY : DAILY;?
     Route: 048
     Dates: start: 20250609, end: 20250709

REACTIONS (5)
  - Rash pruritic [None]
  - Gastrooesophageal reflux disease [None]
  - Hypersensitivity [None]
  - Therapy cessation [None]
  - Hyperthyroidism [None]

NARRATIVE: CASE EVENT DATE: 20250625
